FAERS Safety Report 7781521-0 (Version None)
Quarter: 2011Q3

REPORT INFORMATION
  Report Type: 
  Country: None (occurrence: None)
  Receive Date: 20110927
  Receipt Date: 20110919
  Transmission Date: 20111222
  Serious: Yes (Hospitalization)
  Sender: FDA-Public Use
  Company Number: US-BAYER-2011-014122

PATIENT
  Age: 23 Year
  Sex: Female
  Weight: 59 kg

DRUGS (10)
  1. ZYRTEC [Concomitant]
     Dosage: UNK UNK, QD
     Route: 048
  2. PROVENTIL [Concomitant]
  3. TYLENOL-500 [Concomitant]
     Dosage: 500 MG, UNK
     Route: 048
  4. NAPROXEN [Concomitant]
     Route: 048
  5. PROAIR HFA [Concomitant]
  6. IBUPROFEN [Concomitant]
     Route: 048
  7. ALBUTEROL [Concomitant]
  8. YAZ [Suspect]
     Indication: CONTRACEPTION
     Dosage: UNK
     Route: 048
     Dates: start: 20050901, end: 20080901
  9. YASMIN [Suspect]
     Dosage: UNK
     Dates: start: 20050901, end: 20080901
  10. LEVOCETIRIZINE DIHYDROCHLORIDE [Concomitant]
     Route: 048

REACTIONS (2)
  - PULMONARY EMBOLISM [None]
  - PAIN [None]
